FAERS Safety Report 16584416 (Version 1)
Quarter: 2019Q3

REPORT INFORMATION
  Report Type: Spontaneous
  Country: AT (occurrence: AT)
  Receive Date: 20190717
  Receipt Date: 20190717
  Transmission Date: 20191004
  Serious: Yes (Other)
  Sender: FDA-Public Use
  Company Number: AT-ROCHE-2356415

PATIENT
  Age: 7 Year
  Sex: Female

DRUGS (3)
  1. FRISIUM [Suspect]
     Active Substance: CLOBAZAM
     Indication: EPILEPSY
  2. FRISIUM [Suspect]
     Active Substance: CLOBAZAM
     Indication: PETIT MAL EPILEPSY
     Dosage: UNK
     Route: 065
  3. CLONAZEPAM. [Suspect]
     Active Substance: CLONAZEPAM
     Indication: PRODUCT USED FOR UNKNOWN INDICATION
     Route: 065

REACTIONS (1)
  - Generalised tonic-clonic seizure [Unknown]
